FAERS Safety Report 23968317 (Version 1)
Quarter: 2024Q2

REPORT INFORMATION
  Report Type: Spontaneous
  Country: US (occurrence: None)
  Receive Date: 20240612
  Receipt Date: 20240612
  Transmission Date: 20240716
  Serious: Yes (Other)
  Sender: FDA-Public Use
  Company Number: None

PATIENT
  Age: 41 Year
  Sex: Female

DRUGS (2)
  1. KISQALI [Suspect]
     Active Substance: RIBOCICLIB
     Indication: Metastases to liver
     Dosage: OTHER FREQUENCY : QD 21 D ON 7 D OFF;?
  2. KISQALI [Suspect]
     Active Substance: RIBOCICLIB
     Indication: Cholangiocarcinoma

REACTIONS (1)
  - Drug ineffective [None]
